FAERS Safety Report 4653968-2 (Version None)
Quarter: 2005Q2

REPORT INFORMATION
  Report Type: 
  Country: None (occurrence: None)
  Receive Date: 20050404
  Receipt Date: 20041202
  Transmission Date: 20051028
  Serious: No
  Sender: FDA-Public Use
  Company Number: USA041285059

PATIENT
  Age: 40 Year
  Sex: Female

DRUGS (3)
  1. CYMBALTA [Suspect]
     Indication: MAJOR DEPRESSION
     Dosage: 60 MG/ONCE DAY
     Dates: start: 20041101
  2. FLONASE [Concomitant]
  3. DESLORATADINE [Concomitant]

REACTIONS (1)
  - DYSGEUSIA [None]
